FAERS Safety Report 6659071-4 (Version None)
Quarter: 2010Q1

REPORT INFORMATION
  Report Type: 
  Country: None (occurrence: None)
  Receive Date: 20100330
  Receipt Date: 20100317
  Transmission Date: 20100710
  Serious: No
  Sender: FDA-Public Use
  Company Number: US-B.I. PHARMACEUTICALS,INC./RIDGEFIELD-2010-BP-03175BP

PATIENT
  Sex: Female

DRUGS (7)
  1. MICARDIS [Suspect]
     Indication: CARDIOVASCULAR EVENT PROPHYLAXIS
     Dosage: 20 MG
     Route: 048
     Dates: start: 20100101
  2. ASPIRIN [Concomitant]
     Indication: PROPHYLAXIS
  3. GLYBURIDE [Concomitant]
     Indication: DIABETES MELLITUS
  4. METFORMIN (GLUCOPHAGE) [Concomitant]
     Indication: DIABETES MELLITUS
  5. CALCIUM [Concomitant]
     Indication: PROPHYLAXIS
  6. LUMIGAN [Concomitant]
     Indication: GLAUCOMA
  7. SIMVASTATIN [Concomitant]
     Indication: PROPHYLAXIS

REACTIONS (2)
  - JOINT SWELLING [None]
  - OEDEMA PERIPHERAL [None]
